FAERS Safety Report 7971288-5 (Version None)
Quarter: 2011Q4

REPORT INFORMATION
  Report Type: 
  Country: None (occurrence: None)
  Receive Date: 20111212
  Receipt Date: 20110715
  Transmission Date: 20120403
  Serious: No
  Sender: FDA-Public Use
  Company Number: US-BRISTOL-MYERS SQUIBB COMPANY-15852593

PATIENT
  Age: 65 Year
  Sex: Female

DRUGS (1)
  1. IXEMPRA KIT [Suspect]
     Indication: BREAST CANCER
     Dosage: 52 MG TOTAL,45MG VIAL-OKO32A,EXP:NOV/2012,15MG-OIO25A;EXP:SEPT/2012
     Dates: start: 20110310

REACTIONS (1)
  - INCORRECT DRUG ADMINISTRATION RATE [None]
